FAERS Safety Report 9668017 (Version 5)
Quarter: 2014Q1

REPORT INFORMATION
  Report Type: Spontaneous
  Country: JP (occurrence: JP)
  Receive Date: 20131104
  Receipt Date: 20140313
  Transmission Date: 20141002
  Serious: No
  Sender: FDA-Public Use
  Company Number: JP-GLAXOSMITHKLINE-B0938548A

PATIENT
  Age: 65 Year
  Sex: Female

DRUGS (3)
  1. VOTRIENT 200MG [Suspect]
     Indication: SOFT TISSUE CANCER
     Dosage: 800MG PER DAY
     Route: 048
     Dates: start: 20130910, end: 20131008
  2. VOTRIENT 200MG [Suspect]
     Indication: SOFT TISSUE CANCER
     Dosage: 400MG PER DAY
     Route: 048
     Dates: start: 20131009, end: 20131016
  3. VOTRIENT 200MG [Suspect]
     Indication: SOFT TISSUE CANCER
     Dosage: 200MG PER DAY
     Route: 048
     Dates: start: 20140108, end: 20140114

REACTIONS (7)
  - Liver disorder [Recovering/Resolving]
  - Platelet count decreased [Recovered/Resolved]
  - Malaise [Unknown]
  - Stomatitis [Unknown]
  - Hypertension [Unknown]
  - Granulocyte count decreased [Unknown]
  - Liver disorder [Recovered/Resolved]
